FAERS Safety Report 7854159-4 (Version None)
Quarter: 2011Q4

REPORT INFORMATION
  Report Type: 
  Country: None (occurrence: None)
  Receive Date: 20111026
  Receipt Date: 20100920
  Transmission Date: 20120403
  Serious: No
  Sender: FDA-Public Use
  Company Number: US-BRISTOL-MYERS SQUIBB COMPANY-15293442

PATIENT
  Age: 65 Year
  Sex: Male

DRUGS (2)
  1. CLONAZEPAM [Concomitant]
  2. BUSPIRONE HCL [Suspect]
     Dosage: 1 DF:30MG:40MG TABLETS
     Dates: start: 20100501

REACTIONS (1)
  - DRUG INEFFECTIVE [None]
